FAERS Safety Report 12892618 (Version 1)
Quarter: 2016Q4

REPORT INFORMATION
  Report Type: Report from Study
  Country: US (occurrence: US)
  Receive Date: 20161028
  Receipt Date: 20161028
  Transmission Date: 20170207
  Serious: No
  Sender: FDA-Public Use
  Company Number: US-AMGEN-USASL2016148792

PATIENT
  Age: 62 Year
  Sex: Female

DRUGS (1)
  1. ENBREL [Suspect]
     Active Substance: ETANERCEPT
     Indication: RHEUMATOID ARTHRITIS
     Dosage: UNK UNK, QWK
     Route: 065

REACTIONS (10)
  - Paraesthesia [Unknown]
  - Injection site induration [Recovered/Resolved]
  - Arthralgia [Unknown]
  - Injection site swelling [Recovered/Resolved]
  - Headache [Recovered/Resolved]
  - Injection site urticaria [Recovered/Resolved]
  - Joint stiffness [Unknown]
  - Injection site pain [Unknown]
  - Nausea [Recovered/Resolved]
  - Hypoaesthesia [Unknown]

NARRATIVE: CASE EVENT DATE: 2016
